FAERS Safety Report 4732142-5 (Version None)
Quarter: 2005Q3

REPORT INFORMATION
  Report Type: 
  Country: None (occurrence: None)
  Receive Date: 20050725
  Receipt Date: 20010925
  Transmission Date: 20060218
  Serious: Yes (Other)
  Sender: FDA-Public Use
  Company Number: KII-2001-0011947

PATIENT
  Sex: Female

DRUGS (1)
  1. MS CONTIN [Suspect]
     Dosage: 100 MG, QID, UNKNOWN
     Route: 065

REACTIONS (1)
  - DRUG DEPENDENCE [None]
